FAERS Safety Report 23680490 (Version 1)
Quarter: 2024Q1

REPORT INFORMATION
  Report Type: Spontaneous
  Country: US (occurrence: US)
  Receive Date: 20240328
  Receipt Date: 20240328
  Transmission Date: 20240410
  Serious: Yes (Other)
  Sender: FDA-Public Use
  Company Number: US-AUROBINDO-AUR-APL-2024-014366

PATIENT
  Age: 59 Year
  Sex: Female
  Weight: 58.96 kg

DRUGS (1)
  1. ELETRIPTAN HYDROBROMIDE [Suspect]
     Active Substance: ELETRIPTAN HYDROBROMIDE
     Indication: Migraine
     Dosage: 1 DOSAGE FORM, DAILY (01 TABLET PER DAY AS NEEDED (ONCE IN 02-03 DAYS)
     Route: 048
     Dates: start: 20240103

REACTIONS (12)
  - Retinal tear [Unknown]
  - Transient ischaemic attack [Recovering/Resolving]
  - Somnolence [Unknown]
  - Muscle twitching [Not Recovered/Not Resolved]
  - Unevaluable event [Unknown]
  - Tremor [Not Recovered/Not Resolved]
  - Abnormal dreams [Unknown]
  - Pain in extremity [Unknown]
  - Paraesthesia oral [Unknown]
  - Visual impairment [Unknown]
  - Vitreous floaters [Unknown]
  - Migraine [Not Recovered/Not Resolved]

NARRATIVE: CASE EVENT DATE: 20230503
